FAERS Safety Report 22218923 (Version 3)
Quarter: 2023Q2

REPORT INFORMATION
  Report Type: Spontaneous
  Country: AR (occurrence: AR)
  Receive Date: 20230417
  Receipt Date: 20230629
  Transmission Date: 20230721
  Serious: No
  Sender: FDA-Public Use
  Company Number: AR-PFIZER INC-PV202300064182

PATIENT
  Age: 11 Year
  Sex: Female

DRUGS (1)
  1. GENOTROPIN [Suspect]
     Active Substance: SOMATROPIN
     Indication: Turner^s syndrome
     Dosage: 1 TO 1.4MG, 6 TIMES A WEEK
     Dates: start: 20170214

REACTIONS (3)
  - Poor quality device used [Unknown]
  - Device power source issue [Unknown]
  - Device mechanical issue [Unknown]
